FAERS Safety Report 11938708 (Version 3)
Quarter: 2016Q1

REPORT INFORMATION
  Report Type: Report from Study
  Country: US (occurrence: US)
  Receive Date: 20160122
  Receipt Date: 20160302
  Transmission Date: 20160526
  Serious: No
  Sender: FDA-Public Use
  Company Number: US-AMGEN-USASP2016003995

PATIENT
  Age: 36 Year
  Sex: Female
  Weight: 53.52 kg

DRUGS (2)
  1. ENBREL [Suspect]
     Active Substance: ETANERCEPT
     Indication: PSORIASIS
  2. ENBREL [Suspect]
     Active Substance: ETANERCEPT
     Indication: PSORIATIC ARTHROPATHY
     Dosage: 50 MG, 2 TIMES/WK
     Route: 058
     Dates: start: 20151223, end: 20160111

REACTIONS (8)
  - Drug hypersensitivity [Unknown]
  - Urticaria [Unknown]
  - Peripheral swelling [Not Recovered/Not Resolved]
  - Injection site rash [Unknown]
  - Rash generalised [Unknown]
  - Injection site warmth [Unknown]
  - Injection site erythema [Unknown]
  - Arthralgia [Not Recovered/Not Resolved]

NARRATIVE: CASE EVENT DATE: 201601
